FAERS Safety Report 9260497 (Version 2)
Quarter: 2013Q3

REPORT INFORMATION
  Report Type: Spontaneous
  Country: DE (occurrence: DE)
  Receive Date: 20130429
  Receipt Date: 20130716
  Transmission Date: 20140515
  Serious: Yes (Life-Threatening, Other)
  Sender: FDA-Public Use
  Company Number: DE-ROCHE-1198188

PATIENT
  Age: 21 Year
  Sex: Male
  Weight: 75 kg

DRUGS (9)
  1. MABTHERA [Suspect]
     Indication: IMMUNOGLOBULIN G4 RELATED SCLEROSING DISEASE
     Route: 042
     Dates: start: 20110309, end: 20110322
  2. MABTHERA [Suspect]
     Route: 065
     Dates: start: 201109
  3. MYCOPHENOLATE MOFETIL [Suspect]
     Indication: IMMUNOGLOBULIN G4 RELATED SCLEROSING DISEASE
     Route: 065
     Dates: start: 2010
  4. AZATHIOPRIN [Concomitant]
     Indication: IMMUNOGLOBULIN G4 RELATED SCLEROSING DISEASE
     Route: 065
     Dates: start: 2009
  5. PREDNISOLON [Concomitant]
     Indication: IMMUNOGLOBULIN G4 RELATED SCLEROSING DISEASE
     Route: 065
     Dates: start: 2008
  6. BUDESONID [Concomitant]
     Indication: IMMUNOGLOBULIN G4 RELATED SCLEROSING DISEASE
     Route: 065
  7. ACTRAPID [Concomitant]
  8. PANTOZOL (GERMANY) [Concomitant]
     Route: 065
     Dates: start: 200803
  9. EISEN(II)-GLYCIN-SULFAT-KOMPLEX [Concomitant]
     Route: 065

REACTIONS (2)
  - Biliary sepsis [Recovered/Resolved]
  - Cholestasis [Unknown]
